FAERS Safety Report 24526520 (Version 1)
Quarter: 2024Q4

REPORT INFORMATION
  Report Type: Spontaneous
  Country: RU (occurrence: RU)
  Receive Date: 20241021
  Receipt Date: 20241021
  Transmission Date: 20250114
  Serious: No
  Sender: ROCHE
  Company Number: RU-ROCHE-3473336

PATIENT
  Age: 66 Year
  Sex: Male

DRUGS (3)
  1. VEMURAFENIB [Suspect]
     Active Substance: VEMURAFENIB
     Indication: Malignant melanoma
     Route: 065
     Dates: start: 20230628
  2. COBIMETINIB [Suspect]
     Active Substance: COBIMETINIB
     Indication: Malignant melanoma
     Dosage: FREQUENCY TEXT:DAYS 1-21
     Route: 065
     Dates: start: 20230628
  3. DENOSUMAB [Suspect]
     Active Substance: DENOSUMAB
     Indication: Malignant melanoma
     Route: 058
     Dates: start: 20230628

REACTIONS (2)
  - Pyrexia [Unknown]
  - Skin toxicity [Unknown]
